FAERS Safety Report 11845526 (Version 1)
Quarter: 2015Q4

REPORT INFORMATION
  Report Type: Spontaneous
  Country: US (occurrence: US)
  Receive Date: 20151217
  Receipt Date: 20151217
  Transmission Date: 20160305
  Serious: Yes (Other)
  Sender: FDA-Public Use
  Company Number: US-NOVOPROD-468487

PATIENT
  Age: 81 Year
  Sex: Male
  Weight: 107.94 kg

DRUGS (6)
  1. NOVOLOG [Suspect]
     Active Substance: INSULIN ASPART
     Dosage: 12 U, TID
     Route: 058
     Dates: start: 2011
  2. NOVOLOG [Suspect]
     Active Substance: INSULIN ASPART
     Dosage: 18 U, TID
     Route: 058
     Dates: start: 2011
  3. NOVOLOG [Suspect]
     Active Substance: INSULIN ASPART
     Indication: TYPE 1 DIABETES MELLITUS
     Dosage: 18 U, TID
     Route: 058
     Dates: start: 2011
  4. NOVOLOG [Suspect]
     Active Substance: INSULIN ASPART
     Dosage: 12 U, TID
     Route: 058
     Dates: start: 2011
  5. LEVEMIR [Suspect]
     Active Substance: INSULIN DETEMIR
     Dosage: 30 U, QD IN THE AM
     Route: 058
     Dates: start: 2011
  6. LEVEMIR [Suspect]
     Active Substance: INSULIN DETEMIR
     Indication: TYPE 1 DIABETES MELLITUS
     Dosage: 48 U, QD AT NIGHT
     Route: 058
     Dates: start: 2011

REACTIONS (3)
  - Blood glucose decreased [Recovered/Resolved]
  - Blood glucose decreased [Recovered/Resolved]
  - Hypoglycaemia [Recovered/Resolved]

NARRATIVE: CASE EVENT DATE: 201507
